FAERS Safety Report 17916804 (Version 1)
Quarter: 2020Q2

REPORT INFORMATION
  Report Type: Report from Study
  Country: JP (occurrence: JP)
  Receive Date: 20200619
  Receipt Date: 20200619
  Transmission Date: 20200714
  Serious: Yes (Hospitalization)
  Sender: FDA-Public Use
  Company Number: JP-AXELLIA-003207

PATIENT

DRUGS (1)
  1. VORICONAZOLE. [Suspect]
     Active Substance: VORICONAZOLE
     Indication: PRODUCT USED FOR UNKNOWN INDICATION
     Dosage: LOADING DOSE OF 5-6 MG/KG TWICE DAILY FOLLOWED BY A MAINTENANCE DOSE OF 3-4 MG/KG TWICE DAILY

REACTIONS (1)
  - Hallucination, visual [Recovered/Resolved]
